FAERS Safety Report 8862517 (Version 2)
Quarter: 2012Q4

REPORT INFORMATION
  Report Type: 
  Country: IT (occurrence: IT)
  Receive Date: 20121026
  Receipt Date: 20121121
  Transmission Date: 20130627
  Serious: Yes (Hospitalization, Other)
  Sender: FDA-Public Use
  Company Number: IT-JNJFOC-20121012943

PATIENT
  Age: 34 Year
  Sex: Female
  Weight: 50 kg

DRUGS (5)
  1. TOPAMAX [Suspect]
     Indication: SELF INJURIOUS BEHAVIOUR
     Route: 048
     Dates: start: 20121019, end: 20121019
  2. TOPAMAX [Suspect]
     Indication: SELF INJURIOUS BEHAVIOUR
     Route: 048
  3. TOPAMAX [Suspect]
     Indication: PRODUCT USED FOR UNKNOWN INDICATION
     Route: 048
  4. TOPAMAX [Suspect]
     Indication: PRODUCT USED FOR UNKNOWN INDICATION
     Route: 048
     Dates: start: 20121019, end: 20121019
  5. LAROXYL [Suspect]
     Indication: SELF INJURIOUS BEHAVIOUR
     Route: 048
     Dates: start: 20121019, end: 20121019

REACTIONS (3)
  - Coma [Recovering/Resolving]
  - Self injurious behaviour [Unknown]
  - Overdose [Unknown]
